FAERS Safety Report 14508470 (Version 1)
Quarter: 2018Q1

REPORT INFORMATION
  Report Type: Spontaneous
  Country: IN (occurrence: IN)
  Receive Date: 20180209
  Receipt Date: 20180209
  Transmission Date: 20180509
  Serious: Yes (Disabling)
  Sender: FDA-Public Use
  Company Number: IN-INGENUS PHARMACEUTICALS, LLC-INF201801-000133

PATIENT
  Age: 58 Year
  Sex: Female

DRUGS (9)
  1. PREGABALIN. [Concomitant]
     Active Substance: PREGABALIN
     Route: 048
  2. TRASTUZUMAB. [Suspect]
     Active Substance: TRASTUZUMAB
     Indication: BREAST CANCER
  3. DULOXETINE. [Concomitant]
     Active Substance: DULOXETINE
     Route: 048
  4. PARACETAMOL [Concomitant]
     Active Substance: ACETAMINOPHEN
     Indication: PAIN
  5. PREGABALIN. [Concomitant]
     Active Substance: PREGABALIN
  6. DULOXETINE. [Concomitant]
     Active Substance: DULOXETINE
  7. DOCETAXEL. [Suspect]
     Active Substance: DOCETAXEL
     Indication: BREAST CANCER
  8. CARBOPLATIN. [Suspect]
     Active Substance: CARBOPLATIN
     Indication: BREAST CANCER
  9. TRAMADOL. [Concomitant]
     Active Substance: TRAMADOL
     Indication: PAIN

REACTIONS (1)
  - Polyneuropathy [Recovering/Resolving]
